FAERS Safety Report 10089903 (Version 1)
Quarter: 2014Q2

REPORT INFORMATION
  Report Type: Report from Study
  Country: US (occurrence: US)
  Receive Date: 20140421
  Receipt Date: 20140421
  Transmission Date: 20141212
  Serious: No
  Sender: FDA-Public Use
  Company Number: US-ABBVIE-13P-163-1144103-00

PATIENT
  Sex: Male

DRUGS (3)
  1. LUPRON DEPOT-PED [Suspect]
     Indication: GENDER IDENTITY DISORDER
     Route: 030
     Dates: start: 201202
  2. ESTRADIOL [Concomitant]
     Indication: PRODUCT USED FOR UNKNOWN INDICATION
  3. BIOTIN [Concomitant]
     Indication: PRODUCT USED FOR UNKNOWN INDICATION

REACTIONS (2)
  - Bronchitis [Not Recovered/Not Resolved]
  - Off label use [Unknown]
